FAERS Safety Report 4733471-1 (Version None)
Quarter: 2005Q3

REPORT INFORMATION
  Report Type: 
  Country: None (occurrence: None)
  Receive Date: 20050801
  Receipt Date: 20050801
  Transmission Date: 20060218
  Serious: Yes (Hospitalization)
  Sender: FDA-Public Use
  Company Number: None

PATIENT
  Age: 71 Year
  Sex: Male

DRUGS (6)
  1. FOSINOPRIL SODIUM [Suspect]
     Indication: HYPERTENSION
  2. FUROSEMIDE [Suspect]
     Indication: HYPERTENSION
     Dosage: 40MG BID
     Dates: start: 20031201
  3. DILTIAZEM [Suspect]
     Indication: HYPERTENSION
     Dosage: 120MG QD
     Dates: start: 20050216
  4. KAYEXALATE [Concomitant]
  5. BACLOFEN [Concomitant]
  6. PLAVIX [Concomitant]

REACTIONS (2)
  - ORTHOSTATIC HYPOTENSION [None]
  - RENAL FAILURE ACUTE [None]
